FAERS Safety Report 26186354 (Version 1)
Quarter: 2025Q4

REPORT INFORMATION
  Report Type: Spontaneous
  Country: US (occurrence: None)
  Receive Date: 20251221
  Receipt Date: 20251221
  Transmission Date: 20260118
  Serious: Yes (Death)
  Sender: FDA-CTU
  Company Number: None

PATIENT
  Age: 74 Year
  Sex: Male
  Weight: 114.75 kg

DRUGS (1)
  1. MOUNJARO [Suspect]
     Active Substance: TIRZEPATIDE
     Indication: Type 2 diabetes mellitus
     Dosage: 10 INJECTION(S) WEEKLY INJECTION IN STOMACH
     Route: 058
     Dates: start: 20250930, end: 20250930

REACTIONS (2)
  - Pulmonary embolism [None]
  - Pulmonary thrombosis [None]

NARRATIVE: CASE EVENT DATE: 20251006
